FAERS Safety Report 8986391 (Version 3)
Quarter: 2013Q1

REPORT INFORMATION
  Report Type: Spontaneous
  Country: US (occurrence: None)
  Receive Date: 20121217
  Receipt Date: 20130212
  Transmission Date: 20140127
  Serious: Yes (Hospitalization)
  Sender: FDA-Public Use
  Company Number: US-JNJFOC-20121013977

PATIENT
  Age: 71 Year
  Sex: Male
  Weight: 96.8 kg

DRUGS (1)
  1. DACOGEN [Suspect]
     Indication: ACUTE MYELOID LEUKAEMIA
     Route: 042
     Dates: start: 20120702

REACTIONS (6)
  - Ureteric obstruction [None]
  - Pneumatosis intestinalis [None]
  - Blood creatinine increased [None]
  - Calculus ureteric [None]
  - Hydronephrosis [None]
  - Pyrexia [None]
